FAERS Safety Report 7806396 (Version 11)
Quarter: 2012Q4

REPORT INFORMATION
  Report Type: 
  Country: US (occurrence: US)
  Receive Date: 20110209
  Receipt Date: 20121114
  Transmission Date: 20130627
  Serious: Yes (Hospitalization, Other)
  Sender: FDA-Public Use
  Company Number: US-ASTRAZENECA-2010SE57907

PATIENT
  Age: 59 Year
  Sex: Female

DRUGS (3)
  1. NEXIUM [Suspect]
     Route: 048
  2. PRILOSEC [Suspect]
     Route: 048
  3. RADIATION [Suspect]
     Route: 065

REACTIONS (27)
  - Bone cancer metastatic [Unknown]
  - Haemoptysis [Unknown]
  - Oesophageal carcinoma [Unknown]
  - Grand mal convulsion [Unknown]
  - Lung neoplasm malignant [Unknown]
  - Convulsion [Unknown]
  - Skin cancer [Unknown]
  - Metastasis [Unknown]
  - Brain cancer metastatic [Unknown]
  - Oesophageal haemorrhage [Unknown]
  - Monoparesis [Unknown]
  - Tooth abscess [Unknown]
  - Cataract [Unknown]
  - Bronchitis chronic [Unknown]
  - Dental caries [Unknown]
  - Pulmonary fibrosis [Unknown]
  - Musculoskeletal disorder [Unknown]
  - Salivary gland atrophy [Unknown]
  - Lacrimal atrophy [Unknown]
  - Malaise [Unknown]
  - Abdominal discomfort [Unknown]
  - Oesophageal disorder [Unknown]
  - Lung disorder [Unknown]
  - Nervous system disorder [Unknown]
  - Tooth loss [Unknown]
  - Intentional drug misuse [Unknown]
  - Drug ineffective [Unknown]
